FAERS Safety Report 5355555-X (Version None)
Quarter: 2007Q2

REPORT INFORMATION
  Report Type: 
  Country: None (occurrence: None)
  Receive Date: 20070530
  Receipt Date: 20061023
  Transmission Date: 20071010
  Serious: Yes (Hospitalization)
  Sender: FDA-Public Use
  Company Number: US200609000711

PATIENT
  Age: 42 Year
  Sex: Male
  Weight: 83.9 kg

DRUGS (4)
  1. ZYPREXA [Suspect]
     Indication: ANXIETY
     Dates: start: 20020501, end: 20050101
  2. ALPRAZOLAM [Concomitant]
  3. DEPAKOTE [Concomitant]
  4. RITONAVIR (RITONAVIR) [Concomitant]

REACTIONS (6)
  - DIABETES MELLITUS [None]
  - GLYCOSURIA [None]
  - HYPERGLYCAEMIA [None]
  - PANCREATITIS [None]
  - VISION BLURRED [None]
  - WEIGHT DECREASED [None]
